FAERS Safety Report 17854724 (Version 1)
Quarter: 2020Q2

REPORT INFORMATION
  Report Type: Other
  Country: AU (occurrence: AU)
  Receive Date: 20200603
  Receipt Date: 20200603
  Transmission Date: 20200714
  Serious: Yes (Hospitalization, Other)
  Sender: FDA-Public Use
  Company Number: AU-COVIS PHARMA B.V.-2020COV00222

PATIENT
  Age: 70 Year
  Sex: Female

DRUGS (14)
  1. CLOZAPINE. [Suspect]
     Active Substance: CLOZAPINE
     Indication: SCHIZOPHRENIA
     Dosage: UNK
     Dates: start: 2004, end: 2018
  2. OLANZAPINE. [Suspect]
     Active Substance: OLANZAPINE
     Indication: SCHIZOPHRENIA
     Dosage: 25 MG, 1X/DAY AT BEDTIME
     Dates: start: 2004, end: 2018
  3. LOPERAMIDE [Suspect]
     Active Substance: LOPERAMIDE
     Dosage: 2 MG, AS NEEDED
  4. SERTRALINE [Suspect]
     Active Substance: SERTRALINE HYDROCHLORIDE
     Dosage: 200 MG, 2X/DAY
  5. PANADOL [Suspect]
     Active Substance: ACETAMINOPHEN
     Dosage: 1000 MG, 4X/DAY WHEN NECESSARY
  6. AMOXICILLIN. [Suspect]
     Active Substance: AMOXICILLIN
     Dosage: 1500 MG STAT AT THE FIRST SIGN OF INFECTION
  7. COLECALCIFEROL [Suspect]
     Active Substance: CHOLECALCIFEROL
     Dosage: 1000 IU, 1X/DAY IN THE MORNING
  8. DENCORUB ARTHRITIS CREAM [Suspect]
     Active Substance: TROLAMINE SALICYLATE
     Dosage: UNK, AS NEEDED
     Route: 061
  9. IRON [Suspect]
     Active Substance: IRON
     Indication: IRON DEFICIENCY ANAEMIA
  10. AMOXICILLIN. [Suspect]
     Active Substance: AMOXICILLIN
     Indication: SPLENECTOMY
     Dosage: 250 MG, 1X/DAY IN THE MORNING
  11. PANADOL [Suspect]
     Active Substance: ACETAMINOPHEN
     Indication: OSTEOARTHRITIS
     Dosage: 2 TABLETS, 3X/DAY REGULARLY
  12. VITAMIN B12 [Suspect]
     Active Substance: CYANOCOBALAMIN
     Dosage: 100 ?G, 1X/DAY IN THE MORNING
  13. OMEPRAZOLE MAGNESIUM. [Suspect]
     Active Substance: OMEPRAZOLE MAGNESIUM
     Dosage: 20 MG, 1X/DAY IN THE MORNING
     Route: 048
  14. HYDROZOLE [Suspect]
     Active Substance: CLOTRIMAZOLE\HYDROCORTISONE
     Dosage: UNK, 2X/DAY
     Route: 061

REACTIONS (21)
  - Dehydration [Unknown]
  - Schizophrenia [Unknown]
  - Neutrophilia [Unknown]
  - Hyperparathyroidism [Unknown]
  - Cerebral atrophy [Unknown]
  - Sepsis [Unknown]
  - Hypercalcaemia [Unknown]
  - Pain [Unknown]
  - Rash [Unknown]
  - Escherichia infection [Unknown]
  - Aggression [Unknown]
  - Thrombocytopenia [Unknown]
  - Social avoidant behaviour [Unknown]
  - Urinary incontinence [Unknown]
  - Anal incontinence [Unknown]
  - Balance disorder [Unknown]
  - Mood swings [Unknown]
  - Delirium [Unknown]
  - Hyperkalaemia [Unknown]
  - Urinary tract infection [Unknown]
  - Confusional state [Unknown]

NARRATIVE: CASE EVENT DATE: 2019
